FAERS Safety Report 5599528-0 (Version None)
Quarter: 2008Q1

REPORT INFORMATION
  Report Type: 
  Country: None (occurrence: None)
  Receive Date: 20080123
  Receipt Date: 20080116
  Transmission Date: 20080703
  Serious: Yes (Hospitalization)
  Sender: FDA-Public Use
  Company Number: US-JNJFOC-20071206380

PATIENT
  Age: 81 Year
  Sex: Male
  Weight: 80.74 kg

DRUGS (9)
  1. LEVAQUIN [Suspect]
     Indication: SINUSITIS
     Route: 048
  2. COUMADIN [Concomitant]
     Route: 048
  3. FLOMAX [Concomitant]
     Route: 048
  4. ALOPURINOL [Concomitant]
     Route: 048
  5. LANOXIN [Concomitant]
     Route: 048
  6. ACIPHEX [Concomitant]
     Route: 048
  7. MAG 64 [Concomitant]
     Route: 048
  8. FUROSEMIDE [Concomitant]
     Route: 048
  9. ADVAIR DISKUS 100/50 [Concomitant]
     Route: 055

REACTIONS (2)
  - MUSCLE TIGHTNESS [None]
  - NERVOUS SYSTEM DISORDER [None]
